FAERS Safety Report 7829718-5 (Version None)
Quarter: 2011Q4

REPORT INFORMATION
  Report Type: 
  Country: None (occurrence: None)
  Receive Date: 20111021
  Receipt Date: 20111010
  Transmission Date: 20120403
  Serious: Yes (Death)
  Sender: FDA-Public Use
  Company Number: US-RANBAXY-2011US-49003

PATIENT
  Age: 21 Year
  Sex: Female

DRUGS (3)
  1. ACETAMINOPHEN [Suspect]
     Indication: PRODUCT USED FOR UNKNOWN INDICATION
     Dosage: UNK, UNK
     Route: 048
  2. ETHANOL [Suspect]
     Indication: PRODUCT USED FOR UNKNOWN INDICATION
     Route: 048
  3. ACETAMINOPHEN/DIPHENHYDRAMINE [Suspect]
     Indication: PRODUCT USED FOR UNKNOWN INDICATION
     Route: 048

REACTIONS (10)
  - OLIGURIA [None]
  - MENTAL IMPAIRMENT [None]
  - THROMBOCYTOPENIA [None]
  - MULTIPLE DRUG OVERDOSE INTENTIONAL [None]
  - HAEMATEMESIS [None]
  - HYPOGLYCAEMIA [None]
  - HYPOCALCAEMIA [None]
  - RENAL FAILURE [None]
  - INTRACRANIAL PRESSURE INCREASED [None]
  - HYPOTENSION [None]
